FAERS Safety Report 25452659 (Version 2)
Quarter: 2025Q2

REPORT INFORMATION
  Report Type: Spontaneous
  Country: CA (occurrence: CA)
  Receive Date: 20250618
  Receipt Date: 20250619
  Transmission Date: 20250717
  Serious: Yes (Hospitalization, Other)
  Sender: TEVA
  Company Number: CA-TEVA-VS-3342787

PATIENT
  Age: 55 Year
  Sex: Male

DRUGS (3)
  1. FENTANYL [Suspect]
     Active Substance: FENTANYL
     Indication: Product used for unknown indication
     Route: 065
  2. METHADONE [Concomitant]
     Active Substance: METHADONE HYDROCHLORIDE
     Indication: Product used for unknown indication
     Route: 065
  3. HYDROMORPHONE [Concomitant]
     Active Substance: HYDROMORPHONE
     Indication: Product used for unknown indication
     Route: 065

REACTIONS (8)
  - Cerebral venous sinus thrombosis [Unknown]
  - Overdose [Unknown]
  - Hemiparesis [Unknown]
  - Altered state of consciousness [Unknown]
  - Drug abuse [Unknown]
  - Anaemia [Unknown]
  - Drug use disorder [Unknown]
  - Drug withdrawal syndrome [Unknown]
